FAERS Safety Report 8399704-8 (Version None)
Quarter: 2012Q2

REPORT INFORMATION
  Report Type: 
  Country: None (occurrence: None)
  Receive Date: 20120525
  Receipt Date: 20120516
  Transmission Date: 20120825
  Serious: Yes (Other)
  Sender: FDA-Public Use
  Company Number: 2012AT000263

PATIENT
  Age: 31 Year
  Sex: Male

DRUGS (5)
  1. METHENOLONE ACETATE [Suspect]
     Indication: PRODUCT USED FOR UNKNOWN INDICATION
  2. CAFFEINE [Suspect]
     Indication: PRODUCT USED FOR UNKNOWN INDICATION
     Dosage: PO
     Route: 048
  3. TESTOSTERONE [Suspect]
     Indication: PRODUCT USED FOR UNKNOWN INDICATION
     Dosage: QW; QD
  4. HUMAN GROWTH HORMONE, RECOMBINANT [Suspect]
     Indication: PRODUCT USED FOR UNKNOWN INDICATION
  5. CLOMIPHENE CITRATE [Suspect]
     Indication: PRODUCT USED FOR UNKNOWN INDICATION

REACTIONS (13)
  - ANXIETY [None]
  - HYPERTENSION [None]
  - PALPITATIONS [None]
  - CHEST DISCOMFORT [None]
  - DIARRHOEA [None]
  - HAEMOGLOBIN INCREASED [None]
  - FLUSHING [None]
  - DYSPNOEA [None]
  - LEFT VENTRICULAR HYPERTROPHY [None]
  - EJECTION FRACTION DECREASED [None]
  - MUSCLE HYPERTROPHY [None]
  - GYNAECOMASTIA [None]
  - LOW DENSITY LIPOPROTEIN INCREASED [None]
